FAERS Safety Report 4997263-0 (Version None)
Quarter: 2006Q1

REPORT INFORMATION
  Report Type: 
  Country: None (occurrence: None)
  Receive Date: 20060315
  Receipt Date: 20051116
  Transmission Date: 20060701
  Serious: Yes (Other)
  Sender: FDA-Public Use
  Company Number: 425159

PATIENT
  Age: 55 Year
  Sex: Female
  Weight: 64.9 kg

DRUGS (3)
  1. BONIVA [Suspect]
     Indication: OSTEOPOROSIS
     Dosage: 150 MG 1 PER MONTH ORAL
     Route: 048
     Dates: start: 20051110
  2. TYLENOL #3 (*CAFFEINE/CODEINE PHOSPHATE/PARACETAMOL) [Concomitant]
  3. FOSAMAX [Concomitant]

REACTIONS (3)
  - BRONCHITIS [None]
  - MYALGIA [None]
  - PLEURISY [None]
